FAERS Safety Report 12969812 (Version 1)
Quarter: 2016Q4

REPORT INFORMATION
  Report Type: Spontaneous
  Country: JP (occurrence: JP)
  Receive Date: 20161123
  Receipt Date: 20161123
  Transmission Date: 20170207
  Serious: Yes (Other)
  Sender: FDA-Public Use
  Company Number: JP-PERRIGO-16JP021857

PATIENT
  Age: 20 Year
  Sex: Female

DRUGS (9)
  1. ACETAMINOPHEN. [Suspect]
     Active Substance: ACETAMINOPHEN
     Indication: TONSILLITIS
     Dosage: UNK
     Route: 065
  2. GARENOXACIN MESILATE [Suspect]
     Active Substance: GARENOXACIN MESYLATE
     Indication: TONSILLITIS
     Dosage: UNK
     Route: 065
  3. GARENOXACIN MESILATE [Suspect]
     Active Substance: GARENOXACIN MESYLATE
     Indication: SKIN TEST
     Dosage: UNK
     Route: 050
  4. CARBOCYSTEINE [Suspect]
     Active Substance: CARBOCYSTEINE
     Indication: SKIN TEST
     Dosage: UNK
     Route: 050
  5. ACETAMINOPHEN. [Suspect]
     Active Substance: ACETAMINOPHEN
     Indication: SKIN TEST
     Dosage: UNK
     Route: 050
  6. CARBOCYSTEINE [Suspect]
     Active Substance: CARBOCYSTEINE
     Indication: TONSILLITIS
     Dosage: UNK
     Route: 065
  7. ACETAMINOPHEN. [Suspect]
     Active Substance: ACETAMINOPHEN
     Dosage: UNK
     Route: 061
  8. TRANEXAMIC ACID. [Suspect]
     Active Substance: TRANEXAMIC ACID
     Indication: TONSILLITIS
     Dosage: UNK
     Route: 065
  9. TRANEXAMIC ACID. [Suspect]
     Active Substance: TRANEXAMIC ACID
     Indication: SKIN TEST
     Dosage: UNK
     Route: 050

REACTIONS (5)
  - Anaphylactic reaction [Unknown]
  - Dyspnoea [Unknown]
  - Occupational exposure to product [Unknown]
  - Administration site pruritus [Unknown]
  - Urticaria [Unknown]
